FAERS Safety Report 24535706 (Version 1)
Quarter: 2024Q4

REPORT INFORMATION
  Report Type: Spontaneous
  Country: US (occurrence: US)
  Receive Date: 20241022
  Receipt Date: 20241022
  Transmission Date: 20250115
  Serious: No
  Sender: PFIZER
  Company Number: US-PFIZER INC-PV202400136386

PATIENT
  Age: 36 Year
  Sex: Female

DRUGS (3)
  1. CIBINQO [Suspect]
     Active Substance: ABROCITINIB
     Indication: Dermatitis atopic
     Dosage: TAKE 1 TABLET BY MOUTH DAILY
     Route: 048
  2. ADBRY [Concomitant]
     Active Substance: TRALOKINUMAB-LDRM
     Dosage: ADBRY 150 MG/ML SYR (2=2)
  3. DUPIXENT [Concomitant]
     Active Substance: DUPILUMAB
     Dosage: DUPIXENT 300 MG/2ML PEN (4=2)

REACTIONS (1)
  - Sleep disorder [Unknown]
